FAERS Safety Report 12315591 (Version 4)
Quarter: 2016Q4

REPORT INFORMATION
  Report Type: Report from Study
  Country: US (occurrence: US)
  Receive Date: 20160428
  Receipt Date: 20161012
  Transmission Date: 20170207
  Serious: Yes (Death, Life-Threatening, Hospitalization)
  Sender: FDA-Public Use
  Company Number: US-ACTELION-A-NJ2016-135251

PATIENT
  Age: 63 Year
  Sex: Male

DRUGS (5)
  1. LACTULOSE. [Concomitant]
     Active Substance: LACTULOSE
  2. OPSUMIT [Suspect]
     Active Substance: MACITENTAN
     Indication: PULMONARY ARTERIAL HYPERTENSION
     Dosage: UNK
     Route: 048
     Dates: start: 20160301, end: 20160405
  3. RIFAXIMIN [Concomitant]
     Active Substance: RIFAXIMIN
  4. SPIRONOLACTONE. [Concomitant]
     Active Substance: SPIRONOLACTONE
  5. NADOLOL. [Concomitant]
     Active Substance: NADOLOL

REACTIONS (7)
  - Respiratory distress [Fatal]
  - Respiratory arrest [Fatal]
  - Oedema [Unknown]
  - Chronic hepatic failure [Fatal]
  - Fall [Fatal]
  - Traumatic haemothorax [Fatal]
  - Respiratory failure [Fatal]

NARRATIVE: CASE EVENT DATE: 201603
